FAERS Safety Report 23452290 (Version 2)
Quarter: 2024Q1

REPORT INFORMATION
  Report Type: Spontaneous
  Country: GB (occurrence: GB)
  Receive Date: 20240129
  Receipt Date: 20240217
  Transmission Date: 20240409
  Serious: Yes (Death, Hospitalization, Other)
  Sender: FDA-Public Use
  Company Number: None

PATIENT
  Age: 59 Year
  Sex: Male
  Weight: 62 kg

DRUGS (18)
  1. ARIPIPRAZOLE [Suspect]
     Active Substance: ARIPIPRAZOLE
     Indication: Schizophrenia
     Dosage: 5 MG, UNKNOWN, TABLET (UNCOATED, ORAL)
     Route: 048
  2. OLANZAPINE [Suspect]
     Active Substance: OLANZAPINE
     Indication: Schizophrenia
     Dosage: 15 MILLIGRAM
     Route: 048
     Dates: start: 20060704
  3. RISPERIDONE [Suspect]
     Active Substance: RISPERIDONE
     Indication: Schizophrenia
     Dosage: 3 MG, BID
     Route: 065
  4. ARIPIPRAZOLE [Suspect]
     Active Substance: ARIPIPRAZOLE
     Indication: Product used for unknown indication
     Dosage: 5 MG;
     Route: 065
  5. CHLORPROMAZINE [Suspect]
     Active Substance: CHLORPROMAZINE
     Indication: Schizophrenia
     Dosage: 75 MILLIGRAM, ADDITIONAL INFORMATION ON DRUG (FREE TEXT): CLOZARIL ADDITIONAL INFO: OFF LABEL ?USE
     Route: 065
  6. ZUCLOPENTHIXOL [Suspect]
     Active Substance: ZUCLOPENTHIXOL
     Indication: Product used for unknown indication
     Dosage: 400 MILLIGRAM, QWK
     Route: 030
     Dates: start: 20030204, end: 20040217
  7. CLOZARIL [Suspect]
     Active Substance: CLOZAPINE
     Indication: Schizophrenia
     Dosage: 6000 MG
     Route: 048
     Dates: start: 20100823, end: 20100823
  8. DOCETAXEL [Suspect]
     Active Substance: DOCETAXEL\DOCETAXEL ANHYDROUS
     Indication: Breast cancer metastatic
     Dosage: 330 MG (110 MG, QW3 (CUMULATIVE DOSE: 324.98))
     Route: 065
     Dates: start: 20150930, end: 20151021
  9. DOCETAXEL [Suspect]
     Active Substance: DOCETAXEL\DOCETAXEL ANHYDROUS
     Indication: Breast cancer metastatic
     Dosage: 110 MG, Q3W (CUMULATIVE DOSE: 324.98)
     Route: 065
     Dates: start: 20150930, end: 20151021
  10. HALDOL [Suspect]
     Active Substance: HALOPERIDOL
     Indication: Product used for unknown indication
     Dosage: 20 MG, QD (10 MG, BID)
     Route: 048
  11. HALOPERIDOL [Suspect]
     Active Substance: HALOPERIDOL
     Indication: Schizophrenia
     Dosage: 10 MG, 5 MILLIGRAM, BID
     Route: 048
  12. LITHIUM [Suspect]
     Active Substance: LITHIUM
     Indication: Schizophrenia
     Dosage: 6 MILLIGRAM, QD
     Route: 048
  13. LORAZEPAM [Suspect]
     Active Substance: LORAZEPAM
     Indication: Schizophrenia
     Route: 048
  14. PACLITAXEL [Suspect]
     Active Substance: PACLITAXEL
     Indication: Breast cancer metastatic
     Dosage: 150 MG, QW (CUMULATIVE DOSE: 428.57 MG
     Route: 042
     Dates: start: 20151111, end: 20151222
  15. PERTUZUMAB [Suspect]
     Active Substance: PERTUZUMAB
     Indication: Breast cancer metastatic
     Dosage: 840 MG, Q3W (CUMULATIVE DOSE: 2481.6667 MG)
     Route: 065
     Dates: start: 20150930
  16. RISPERIDONE [Suspect]
     Active Substance: RISPERIDONE
     Indication: Schizophrenia
     Dosage: 6 MG EVERY 1 DAY
     Route: 065
  17. TRASTUZUMAB [Suspect]
     Active Substance: TRASTUZUMAB
     Indication: Breast cancer metastatic
     Dosage: 1218 MILLIGRAM, QWK (206893.25 MG)
     Route: 042
     Dates: start: 20150930
  18. DENOSUMAB [Suspect]
     Active Substance: DENOSUMAB
     Indication: Product used for unknown indication
     Dosage: UNKNOWN
     Route: 065

REACTIONS (38)
  - Hallucination, auditory [Fatal]
  - Neoplasm progression [Fatal]
  - Schizophrenia [Fatal]
  - Thrombocytopenia [Fatal]
  - Lymphocyte count abnormal [Fatal]
  - Lymphocyte count abnormal [Fatal]
  - Lymphocyte count decreased [Fatal]
  - Neutrophil count decreased [Fatal]
  - Leukocytosis [Fatal]
  - Leukocytosis [Fatal]
  - Neutrophil count increased [Fatal]
  - Psychotic disorder [Fatal]
  - Rhinalgia [Fatal]
  - SARS-CoV-2 test positive [Fatal]
  - Extrapyramidal disorder [Fatal]
  - Mucosal inflammation [Fatal]
  - Platelet count decreased [Fatal]
  - Neuropathy peripheral [Fatal]
  - Leukopenia [Fatal]
  - Alopecia [Fatal]
  - Dyspepsia [Fatal]
  - Cellulitis [Fatal]
  - Fatigue [Fatal]
  - Fatigue [Fatal]
  - Nausea [Fatal]
  - COVID-19 [Fatal]
  - Neutropenia [Fatal]
  - Diarrhoea [Fatal]
  - Fatigue [Fatal]
  - Disease progression [Fatal]
  - Delusion of grandeur [Fatal]
  - Affective disorder [Fatal]
  - Seizure [Fatal]
  - Overdose [Fatal]
  - Incorrect dose administered [Fatal]
  - Off label use [Fatal]
  - Intentional product misuse [Fatal]
  - Off label use [Fatal]

NARRATIVE: CASE EVENT DATE: 20151101
